FAERS Safety Report 13610255 (Version 1)
Quarter: 2017Q2

REPORT INFORMATION
  Report Type: Spontaneous
  Country: TR (occurrence: TR)
  Receive Date: 20170605
  Receipt Date: 20170605
  Transmission Date: 20170830
  Serious: Yes (Death, Life-Threatening, Hospitalization, Other)
  Sender: FDA-Public Use
  Company Number: TR-ACCORD-052095

PATIENT
  Age: 76 Year
  Sex: Female
  Weight: 80 kg

DRUGS (3)
  1. ACETYLSALICYLIC ACID [Concomitant]
     Active Substance: ASPIRIN
  2. INSULIN [Concomitant]
     Active Substance: INSULIN NOS
  3. AMLODIPINE [Suspect]
     Active Substance: AMLODIPINE BESYLATE
     Indication: PRODUCT USED FOR UNKNOWN INDICATION
     Route: 048

REACTIONS (9)
  - Bradycardia [Fatal]
  - Loss of consciousness [Unknown]
  - Metabolic acidosis [Fatal]
  - Confusional state [Unknown]
  - Hypotension [Unknown]
  - Intentional overdose [Fatal]
  - Cardiac arrest [Fatal]
  - Ischaemia [Fatal]
  - Lactic acidosis [Fatal]
